FAERS Safety Report 5987180-1 (Version None)
Quarter: 2008Q4

REPORT INFORMATION
  Report Type: 
  Country: None (occurrence: None)
  Receive Date: 20081209
  Receipt Date: 20081204
  Transmission Date: 20090506
  Serious: Yes (Hospitalization)
  Sender: FDA-Public Use
  Company Number: FR-JNJFOC-20081201453

PATIENT
  Age: 34 Year
  Sex: Female

DRUGS (2)
  1. SPORANOX [Suspect]
     Indication: FUNGAL INFECTION
     Route: 048
  2. KETODERM [Suspect]
     Indication: FUNGAL INFECTION
     Route: 003

REACTIONS (1)
  - HEADACHE [None]
